FAERS Safety Report 10886151 (Version 2)
Quarter: 2015Q1

REPORT INFORMATION
  Report Type: Spontaneous
  Country: JP (occurrence: JP)
  Receive Date: 20150304
  Receipt Date: 20150331
  Transmission Date: 20150721
  Serious: Yes (Death, Other)
  Sender: FDA-Public Use
  Company Number: JP-ASTRAZENECA-2015SE19853

PATIENT
  Age: 85 Year
  Sex: Male

DRUGS (12)
  1. AMLODIPINE [Concomitant]
     Active Substance: AMLODIPINE BESYLATE
     Route: 048
     Dates: start: 20121024, end: 20141111
  2. SALOBEL [Concomitant]
     Active Substance: ALLOPURINOL
     Route: 048
     Dates: start: 20110117, end: 20140621
  3. PROMAC [Concomitant]
     Active Substance: NITROFURANTOIN
     Route: 048
     Dates: start: 20120703, end: 20141111
  4. EQUA [Concomitant]
     Active Substance: VILDAGLIPTIN
     Route: 048
     Dates: start: 20130920, end: 20141111
  5. GLUFAST [Concomitant]
     Active Substance: MITIGLINIDE
     Route: 048
     Dates: end: 20140621
  6. CETILO [Concomitant]
     Dosage: DOSE UNKNOWN
     Route: 048
     Dates: start: 20120928, end: 20141111
  7. RAYNANON [Concomitant]
     Dosage: DOSE UNKNOWN
     Route: 062
     Dates: start: 20110117, end: 20141111
  8. DIART [Concomitant]
     Active Substance: AZOSEMIDE
     Route: 048
     Dates: start: 20130402, end: 20141111
  9. HARNAL [Concomitant]
     Active Substance: TAMSULOSIN HYDROCHLORIDE
     Route: 048
     Dates: start: 20110107, end: 20141111
  10. FORXIGA [Suspect]
     Active Substance: DAPAGLIFLOZIN
     Indication: TYPE 2 DIABETES MELLITUS
     Route: 048
     Dates: start: 20140621, end: 20141111
  11. MAGNESIUM OXIDE. [Concomitant]
     Active Substance: MAGNESIUM OXIDE
     Dosage: DOSE UNKNOWN
     Route: 048
     Dates: start: 20120928, end: 20141111
  12. BAYASPIRIN [Concomitant]
     Active Substance: ASPIRIN
     Route: 048
     Dates: start: 20110117, end: 20141111

REACTIONS (1)
  - Cardiac failure [Fatal]

NARRATIVE: CASE EVENT DATE: 20141113
